FAERS Safety Report 17547184 (Version 1)
Quarter: 2020Q1

REPORT INFORMATION
  Report Type: Spontaneous
  Country: GB (occurrence: GB)
  Receive Date: 20200316
  Receipt Date: 20200316
  Transmission Date: 20200409
  Serious: Yes (Other)
  Sender: FDA-Public Use
  Company Number: GB-JNJFOC-20200306945

PATIENT
  Age: 55 Year
  Sex: Male

DRUGS (2)
  1. XEPLION [Suspect]
     Active Substance: PALIPERIDONE PALMITATE
     Dosage: DAY 8
     Route: 030
  2. XEPLION [Suspect]
     Active Substance: PALIPERIDONE PALMITATE
     Indication: PRODUCT USED FOR UNKNOWN INDICATION
     Dosage: DAY 1
     Route: 030

REACTIONS (5)
  - Dysarthria [Unknown]
  - Contraindicated product administered [Unknown]
  - Salivary hypersecretion [Unknown]
  - Extrapyramidal disorder [Unknown]
  - Parkinsonism [Unknown]

NARRATIVE: CASE EVENT DATE: 20190821
